FAERS Safety Report 25548816 (Version 2)
Quarter: 2025Q3

REPORT INFORMATION
  Report Type: Spontaneous
  Country: RU (occurrence: None)
  Receive Date: 20250714
  Receipt Date: 20250818
  Transmission Date: 20251020
  Serious: Yes (Other)
  Sender: ALEXION PHARMACEUTICALS
  Company Number: RU-ASTRAZENECA-202507EAF003631RU

PATIENT
  Age: 86 Year
  Sex: Male
  Weight: 67 kg

DRUGS (18)
  1. DAPAGLIFLOZIN [Suspect]
     Active Substance: DAPAGLIFLOZIN
     Dates: start: 20250524, end: 20250527
  2. FOLIC ACID [Suspect]
     Active Substance: FOLIC ACID
     Indication: Anaemia
     Dosage: 5 MILLIGRAM, QD
     Dates: start: 20250525, end: 20250526
  3. CARVEDILOL [Suspect]
     Active Substance: CARVEDILOL
     Indication: Aortic valve disease
     Dosage: 6.25 MILLIGRAM, QD
     Dates: start: 20250526, end: 20250527
  4. CARVEDILOL [Suspect]
     Active Substance: CARVEDILOL
     Indication: Atrial tachycardia
     Dosage: 12.5 MILLIGRAM, BID
  5. CHOLECALCIFEROL [Concomitant]
     Active Substance: CHOLECALCIFEROL
     Route: 065
  6. BLOOD, BOVINE [Concomitant]
     Active Substance: BLOOD, BOVINE
     Route: 065
  7. ATORVASTATIN [Concomitant]
     Active Substance: ATORVASTATIN
     Route: 065
  8. ASPIRIN [Concomitant]
     Active Substance: ASPIRIN
     Route: 065
  9. GABAPENTIN [Concomitant]
     Active Substance: GABAPENTIN
     Route: 065
  10. DROTAVERINE [Concomitant]
     Active Substance: DROTAVERINE
     Route: 065
  11. CLOPIDOGREL [Concomitant]
     Active Substance: CLOPIDOGREL BISULFATE
  12. RIVAROXABAN [Concomitant]
     Active Substance: RIVAROXABAN
     Route: 065
  13. MELATONIN [Concomitant]
     Active Substance: MELATONIN
     Route: 065
  14. OMEPRAZOLE [Concomitant]
     Active Substance: OMEPRAZOLE
     Route: 065
  15. OMEPRAZOLE [Concomitant]
     Active Substance: OMEPRAZOLE
     Route: 065
  16. LACTULOSE [Concomitant]
     Active Substance: LACTULOSE
     Route: 065
  17. TRAMADOL [Concomitant]
     Active Substance: TRAMADOL
     Route: 065
  18. FERINJECT [Concomitant]
     Active Substance: FERRIC CARBOXYMALTOSE
     Route: 065

REACTIONS (1)
  - Toxic skin eruption [Recovered/Resolved]

NARRATIVE: CASE EVENT DATE: 20250527
